FAERS Safety Report 4572416-4 (Version None)
Quarter: 2005Q1

REPORT INFORMATION
  Report Type: 
  Country: None (occurrence: None)
  Receive Date: 20050207
  Receipt Date: 20041207
  Transmission Date: 20050727
  Serious: Yes (Hospitalization)
  Sender: FDA-Public Use
  Company Number: J200405139

PATIENT
  Age: 67 Year
  Sex: Male
  Weight: 60 kg

DRUGS (4)
  1. SAWACILLIN [Suspect]
     Indication: ILL-DEFINED DISORDER
     Dosage: 250MG THREE TIMES PER DAY
     Route: 048
     Dates: start: 20041103, end: 20041103
  2. CLINDAMYCIN [Suspect]
     Indication: ILL-DEFINED DISORDER
     Dosage: 150MG THREE TIMES PER DAY
     Route: 048
     Dates: start: 20041103, end: 20041103
  3. MEFENAMIC ACID [Concomitant]
     Indication: ILL-DEFINED DISORDER
     Route: 065
     Dates: start: 20041103, end: 20041103
  4. SODIUM GUALENATE [Concomitant]
     Indication: ILL-DEFINED DISORDER
     Route: 065
     Dates: start: 20041103, end: 20041103

REACTIONS (5)
  - ANAPHYLACTIC SHOCK [None]
  - ASTHENIA [None]
  - DIARRHOEA [None]
  - VOMITING [None]
  - WHITE BLOOD CELL COUNT INCREASED [None]
